FAERS Safety Report 8881262 (Version 1)
Quarter: 2012Q4

REPORT INFORMATION
  Report Type: 
  Country: US (occurrence: US)
  Receive Date: 20121031
  Receipt Date: 20121031
  Transmission Date: 20130627
  Serious: Yes (Other)
  Sender: FDA-Public Use
  Company Number: US-ELI_LILLY_AND_COMPANY-US201210006003

PATIENT
  Age: 81 Year
  Sex: Female

DRUGS (3)
  1. FORTEO [Suspect]
     Dosage: UNK
     Dates: start: 200509, end: 200712
  2. FORTEO [Suspect]
     Dosage: UNK
     Dates: start: 201205
  3. RECLAST [Concomitant]
     Dosage: UNK
     Dates: end: 201205

REACTIONS (4)
  - Hip fracture [Unknown]
  - Pelvic fracture [Unknown]
  - Hand fracture [Unknown]
  - Incorrect drug administration duration [Unknown]
